FAERS Safety Report 5531635-0 (Version None)
Quarter: 2007Q4

REPORT INFORMATION
  Report Type: 
  Country: None (occurrence: None)
  Receive Date: 20071203
  Receipt Date: 20071128
  Transmission Date: 20080405
  Serious: Yes (Other)
  Sender: FDA-Public Use
  Company Number: US-ALLERGAN-0712605US

PATIENT
  Sex: Male
  Weight: 102.4 kg

DRUGS (2)
  1. ZYMAR [Suspect]
     Indication: PROPHYLAXIS
     Dosage: 1 GTT, Q1HR
     Route: 047
     Dates: start: 20071112, end: 20071114
  2. ZYMAR [Suspect]
     Indication: EYE INJURY

REACTIONS (11)
  - ABASIA [None]
  - ASTHENIA [None]
  - DYSPNOEA [None]
  - ERYTHEMA OF EYELID [None]
  - EYE SWELLING [None]
  - EYELID OEDEMA [None]
  - HYPERSENSITIVITY [None]
  - OBSTRUCTIVE AIRWAYS DISORDER [None]
  - RASH [None]
  - SWELLING FACE [None]
  - URTICARIA [None]
